FAERS Safety Report 9450122 (Version 4)
Quarter: 2013Q4

REPORT INFORMATION
  Report Type: Spontaneous
  Country: US (occurrence: US)
  Receive Date: 20130809
  Receipt Date: 20131121
  Transmission Date: 20140711
  Serious: Yes (Other)
  Sender: FDA-Public Use
  Company Number: US-PFIZER INC-2013227476

PATIENT
  Age: 78 Year
  Sex: Male

DRUGS (11)
  1. INLYTA [Suspect]
     Indication: RENAL CELL CARCINOMA
     Dosage: UNK
     Route: 048
     Dates: start: 201305
  2. INLYTA [Suspect]
     Dosage: 5 MG, 2X/DAY
     Route: 048
     Dates: start: 20130606, end: 201307
  3. INLYTA [Suspect]
     Dosage: 3 MG, 2X/DAY
     Dates: start: 201308
  4. INLYTA [Suspect]
     Dosage: UNK
     Route: 048
     Dates: end: 201310
  5. ASA [Concomitant]
     Dosage: 81 MG, DAILY
     Route: 048
  6. CALCIUM WITH VITAMIN D [Concomitant]
     Dosage: UNK
  7. COLACE [Concomitant]
     Dosage: UNK
  8. DIGOXIN [Concomitant]
     Dosage: UNK
  9. METOPROLOL [Concomitant]
     Dosage: 25 MG, 2X/DAY
     Route: 048
  10. NEXIUM [Concomitant]
     Dosage: 40 MG, 1X/DAY
     Route: 048
  11. LIPITOR [Concomitant]
     Dosage: UNK

REACTIONS (11)
  - Laryngeal oedema [Recovering/Resolving]
  - Dysphagia [Recovered/Resolved]
  - Dysphonia [Recovering/Resolving]
  - Saliva altered [Recovering/Resolving]
  - Salivary hypersecretion [Recovering/Resolving]
  - Hallucination, visual [Recovering/Resolving]
  - Hallucination, auditory [Recovering/Resolving]
  - Confusional state [Unknown]
  - Belligerence [Unknown]
  - Aggression [Unknown]
  - Rhinorrhoea [Unknown]
